FAERS Safety Report 10454121 (Version 1)
Quarter: 2014Q3

REPORT INFORMATION
  Report Type: Spontaneous
  Country: US (occurrence: US)
  Receive Date: 20140915
  Receipt Date: 20140915
  Transmission Date: 20150326
  Serious: No
  Sender: FDA-Public Use
  Company Number: US-BRISTOL-MYERS SQUIBB COMPANY-21066865

PATIENT
  Age: 78 Year
  Sex: Female

DRUGS (10)
  1. PRAVASTATIN SODIUM. [Concomitant]
     Active Substance: PRAVASTATIN SODIUM
  2. AMIODARONE [Concomitant]
     Active Substance: AMIODARONE
  3. LEVOTHYROXINE [Concomitant]
     Active Substance: LEVOTHYROXINE
  4. KLOR-CON [Concomitant]
     Active Substance: POTASSIUM CHLORIDE
  5. NORVASC [Concomitant]
     Active Substance: AMLODIPINE BESYLATE
  6. ELIQUIS [Suspect]
     Active Substance: APIXABAN
  7. METOPROLOL [Concomitant]
     Active Substance: METOPROLOL
  8. BENICAR [Concomitant]
     Active Substance: OLMESARTAN MEDOXOMIL
  9. ASPIRIN. [Concomitant]
     Active Substance: ASPIRIN
  10. LASIX [Concomitant]
     Active Substance: FUROSEMIDE

REACTIONS (3)
  - Headache [Unknown]
  - Contusion [Unknown]
  - Drug prescribing error [Unknown]
